FAERS Safety Report 5962799-2 (Version None)
Quarter: 2008Q4

REPORT INFORMATION
  Report Type: 
  Country: None (occurrence: None)
  Receive Date: 20081120
  Receipt Date: 20081110
  Transmission Date: 20090506
  Serious: Yes (Hospitalization)
  Sender: FDA-Public Use
  Company Number: 2008-04060

PATIENT
  Age: 70 Year
  Sex: Male
  Weight: 92.1 kg

DRUGS (15)
  1. VELCADE [Suspect]
     Indication: MULTIPLE MYELOMA
     Dosage: 1.3 MG/M2, IV BOLUS
     Route: 040
     Dates: start: 20081006, end: 20081020
  2. DEXAMETHASONE TAB [Suspect]
     Indication: MULTIPLE MYELOMA
     Dosage: 20MG ORAL
     Route: 048
     Dates: start: 20080917, end: 20081020
  3. TOPROLOL XL(METOPROLOL SUCCINATE) [Concomitant]
  4. ZOCOR [Concomitant]
  5. AMIODARONE HCL [Concomitant]
  6. ALTACE [Concomitant]
  7. DIGOXIN [Concomitant]
  8. SYNTHROID [Concomitant]
  9. ASPIRIN [Concomitant]
  10. NIASPAN [Concomitant]
  11. SPIRIVA [Concomitant]
  12. DURAGESIC-100 [Concomitant]
  13. ACETAMINOPHEN AND OXYCODONE HCL [Concomitant]
  14. COMPAZINE (PROCHLORPERAZINE EDIZYLATE) [Concomitant]
  15. ALLOPURINOL [Concomitant]

REACTIONS (8)
  - BACTERIA SPUTUM IDENTIFIED [None]
  - GASTRIC DISORDER [None]
  - HEPATIC CYST [None]
  - HYPERSOMNIA [None]
  - ILEUS PARALYTIC [None]
  - METASTASES TO BONE [None]
  - SINUSITIS [None]
  - SPLENIC GRANULOMA [None]
